FAERS Safety Report 10450824 (Version 2)
Quarter: 2016Q2

REPORT INFORMATION
  Report Type: Report from Study
  Country: US (occurrence: US)
  Receive Date: 20140912
  Receipt Date: 20160518
  Transmission Date: 20160815
  Serious: Yes (Death, Other)
  Sender: FDA-Public Use
  Company Number: PHEH2014US018120

PATIENT
  Age: 85 Year
  Sex: Female
  Weight: 82.54 kg

DRUGS (5)
  1. ZYKADIA [Suspect]
     Active Substance: CERITINIB
     Indication: NON-SMALL CELL LUNG CANCER
     Dosage: 750 MG, UNK
     Route: 048
     Dates: start: 20140701
  2. POTASSIUM CHLORIDE. [Concomitant]
     Active Substance: POTASSIUM CHLORIDE
     Indication: PRODUCT USED FOR UNKNOWN INDICATION
     Dosage: 10 MG, QD
  3. NEURONTIN [Concomitant]
     Active Substance: GABAPENTIN
     Indication: PRODUCT USED FOR UNKNOWN INDICATION
     Dosage: 100 MG, TID
     Route: 048
  4. LEVOTHYROXINE. [Concomitant]
     Active Substance: LEVOTHYROXINE
     Indication: PRODUCT USED FOR UNKNOWN INDICATION
     Dosage: 125 MCG/ML, QD
     Route: 048
  5. LORAZEPAM. [Concomitant]
     Active Substance: LORAZEPAM
     Indication: PRODUCT USED FOR UNKNOWN INDICATION
     Dosage: 0.5 MG, UNK
     Route: 049

REACTIONS (24)
  - Metastases to bone [Unknown]
  - Blood albumin decreased [Unknown]
  - Asthenia [Unknown]
  - Nausea [Unknown]
  - Blood glucose increased [Unknown]
  - Platelet count decreased [Unknown]
  - Red blood cell count decreased [Unknown]
  - Haemoglobin decreased [Unknown]
  - Non-small cell lung cancer [Fatal]
  - Lymphoedema [Unknown]
  - Red cell distribution width increased [Unknown]
  - Diarrhoea [Unknown]
  - Colon cancer [Unknown]
  - Pain in extremity [Unknown]
  - Blood calcium decreased [Unknown]
  - Dyspnoea [Unknown]
  - Malignant neoplasm progression [Fatal]
  - Second primary malignancy [Unknown]
  - Blood urea increased [Unknown]
  - Glomerular filtration rate decreased [Unknown]
  - Vomiting [Unknown]
  - Decreased appetite [Unknown]
  - Fatigue [Unknown]
  - Haematocrit decreased [Unknown]

NARRATIVE: CASE EVENT DATE: 20140703
